FAERS Safety Report 7380050-6 (Version None)
Quarter: 2011Q1

REPORT INFORMATION
  Report Type: 
  Country: None (occurrence: None)
  Receive Date: 20110329
  Receipt Date: 20110322
  Transmission Date: 20110831
  Serious: Yes (Death)
  Sender: FDA-Public Use
  Company Number: DE-JNJFOC-20110107375

PATIENT
  Age: 93 Year
  Sex: Female
  Weight: 50 kg

DRUGS (9)
  1. UNKNOWN MEDICATION [Concomitant]
     Route: 065
  2. HALDOL [Suspect]
     Indication: DELUSION
     Route: 048
     Dates: start: 20101010, end: 20101014
  3. RISPERDAL [Suspect]
     Indication: DELUSION
     Route: 048
     Dates: start: 20101003, end: 20101010
  4. HALDOL [Suspect]
     Indication: PERSONALITY DISORDER
     Route: 048
     Dates: start: 20101010, end: 20101014
  5. HALDOL [Suspect]
     Indication: PSYCHOTIC DISORDER
     Route: 048
     Dates: start: 20101010, end: 20101014
  6. HALDOL [Suspect]
     Indication: HALLUCINATION, VISUAL
     Route: 048
     Dates: start: 20101010, end: 20101014
  7. HALDOL [Suspect]
     Indication: RESTLESSNESS
     Route: 048
     Dates: start: 20101010, end: 20101014
  8. RISPERDAL [Suspect]
     Indication: HALLUCINATION, VISUAL
     Route: 048
     Dates: start: 20101003, end: 20101010
  9. RISPERDAL [Suspect]
     Indication: RESTLESSNESS
     Route: 048
     Dates: start: 20101003, end: 20101010

REACTIONS (2)
  - PNEUMONIA ASPIRATION [None]
  - TARDIVE DYSKINESIA [None]
